FAERS Safety Report 4748560-5 (Version None)
Quarter: 2005Q3

REPORT INFORMATION
  Report Type: 
  Country: None (occurrence: None)
  Receive Date: 20050818
  Receipt Date: 20050818
  Transmission Date: 20060218
  Serious: Yes (Other)
  Sender: FDA-Public Use
  Company Number: None

PATIENT
  Sex: Female

DRUGS (4)
  1. COPAXONE [Suspect]
     Indication: RELAPSING-REMITTING MULTIPLE SCLEROSIS
     Dosage: 20MG   QD  SUBCUTANEO
     Route: 058
  2. VICODIN ES [Concomitant]
  3. PREVACID [Concomitant]
  4. FELDENE [Concomitant]

REACTIONS (3)
  - ASTHENIA [None]
  - PYREXIA [None]
  - URTICARIA [None]
